FAERS Safety Report 17826912 (Version 2)
Quarter: 2020Q2

REPORT INFORMATION
  Report Type: Spontaneous
  Country: GB (occurrence: GB)
  Receive Date: 20200526
  Receipt Date: 20200628
  Transmission Date: 20200714
  Serious: Yes (Other)
  Sender: FDA-Public Use
  Company Number: NVSC2020GB139032

PATIENT
  Age: 44 Year
  Sex: Male

DRUGS (4)
  1. RAMIPRIL. [Suspect]
     Active Substance: RAMIPRIL
     Dosage: 40 MG
     Route: 065
  2. COPAXONE [Suspect]
     Active Substance: GLATIRAMER ACETATE
     Indication: MULTIPLE SCLEROSIS
     Dosage: 3 OT, QW (PRE-FILLED SYRINGE)
     Route: 058
     Dates: start: 20160517
  3. AMLODIPINE [Suspect]
     Active Substance: AMLODIPINE BESYLATE
     Indication: BLOOD PRESSURE MEASUREMENT
     Dosage: UNK
     Route: 065
     Dates: end: 2019
  4. RAMIPRIL. [Suspect]
     Active Substance: RAMIPRIL
     Indication: BLOOD PRESSURE MEASUREMENT
     Dosage: 10 MG
     Route: 065

REACTIONS (11)
  - Malaise [Recovered/Resolved]
  - Blood pressure systolic increased [Recovered/Resolved]
  - Tinnitus [Recovered/Resolved]
  - Chest discomfort [Recovering/Resolving]
  - Spinal pain [Recovered/Resolved]
  - Epistaxis [Recovered/Resolved]
  - Fear of injection [Unknown]
  - Visual impairment [Recovered/Resolved]
  - Throat irritation [Recovered/Resolved]
  - Taste disorder [Recovered/Resolved]
  - Dyspnoea [Recovering/Resolving]

NARRATIVE: CASE EVENT DATE: 2019
